FAERS Safety Report 4319344-7 (Version None)
Quarter: 2004Q1

REPORT INFORMATION
  Report Type: 
  Country: None (occurrence: None)
  Receive Date: 20040319
  Receipt Date: 20040310
  Transmission Date: 20041129
  Serious: Yes (Hospitalization)
  Sender: FDA-Public Use
  Company Number: PHBS2004SE03382

PATIENT
  Age: 65 Year
  Sex: Male

DRUGS (2)
  1. DIOVAN [Suspect]
     Indication: HYPERTENSION
     Dosage: 80 MG/DAY
     Route: 048
     Dates: start: 20040201
  2. WARAN [Concomitant]

REACTIONS (3)
  - CHEST DISCOMFORT [None]
  - HYPERHIDROSIS [None]
  - URETHRAL HAEMORRHAGE [None]
